FAERS Safety Report 8434819-7 (Version None)
Quarter: 2012Q2

REPORT INFORMATION
  Report Type: 
  Country: None (occurrence: None)
  Receive Date: 20120614
  Receipt Date: 20120604
  Transmission Date: 20120825
  Serious: Yes (Other)
  Sender: FDA-Public Use
  Company Number: US-BAYER-2012-055864

PATIENT
  Age: 50 Year
  Sex: Female

DRUGS (3)
  1. NOVOCAIN [Concomitant]
     Indication: DENTAL CARE
     Dosage: UNK
     Dates: start: 20090601
  2. CIPROFLOXACIN HCL [Suspect]
     Indication: DENTAL CARE
     Dosage: 500 MG, QD
     Dates: start: 20090601
  3. NITROUS OXIDE [Concomitant]
     Indication: DENTAL CARE
     Dosage: UNK
     Dates: start: 20090601

REACTIONS (18)
  - VOMITING [None]
  - PARAESTHESIA [None]
  - PYREXIA [None]
  - MUSCLE SPASMS [None]
  - FOOD INTOLERANCE [None]
  - FACIAL PAIN [None]
  - FACE OEDEMA [None]
  - BLISTER [None]
  - SUICIDE ATTEMPT [None]
  - UNEVALUABLE EVENT [None]
  - NAUSEA [None]
  - SINUSITIS [None]
  - TRIGEMINAL NEURALGIA [None]
  - GASTROINTESTINAL PAIN [None]
  - DIARRHOEA [None]
  - CHILLS [None]
  - MUSCULAR WEAKNESS [None]
  - PAIN [None]
